FAERS Safety Report 14194644 (Version 3)
Quarter: 2018Q1

REPORT INFORMATION
  Report Type: Spontaneous
  Country: IT (occurrence: IT)
  Receive Date: 20171116
  Receipt Date: 20180212
  Transmission Date: 20180508
  Serious: Yes (Hospitalization)
  Sender: FDA-Public Use
  Company Number: IT-MYLANLABS-2017M1072619

PATIENT
  Age: 16 Year
  Sex: Male
  Weight: 120 kg

DRUGS (2)
  1. RISPERIDONE MYLAN GENERICS 1 MG/ML SOLUZIONE ORALE [Suspect]
     Active Substance: RISPERIDONE
     Indication: HYPERKINESIA
  2. RISPERIDONE MYLAN GENERICS 1 MG/ML SOLUZIONE ORALE [Suspect]
     Active Substance: RISPERIDONE
     Indication: AGITATION
     Dosage: 12 MG, QD
     Route: 048
     Dates: start: 20171014, end: 20171014

REACTIONS (3)
  - Dyspnoea [Recovering/Resolving]
  - Accidental overdose [Unknown]
  - Bronchospasm [Recovering/Resolving]

NARRATIVE: CASE EVENT DATE: 20171014
